FAERS Safety Report 11105222 (Version 2)
Quarter: 2015Q2

REPORT INFORMATION
  Report Type: Spontaneous
  Country: US (occurrence: US)
  Receive Date: 20150511
  Receipt Date: 20150630
  Transmission Date: 20150821
  Serious: No
  Sender: FDA-Public Use
  Company Number: US-009507513-1505USA003250

PATIENT
  Age: 22 Year
  Sex: Female
  Weight: 81.63 kg

DRUGS (1)
  1. NEXPLANON [Suspect]
     Active Substance: ETONOGESTREL
     Indication: CONTRACEPTION
     Dosage: IN LEFT ARM
     Route: 059
     Dates: start: 20131007

REACTIONS (4)
  - Vaginal haemorrhage [Recovered/Resolved]
  - Breast pain [Unknown]
  - Amenorrhoea [Unknown]
  - Breast discharge [Unknown]

NARRATIVE: CASE EVENT DATE: 20131007
